FAERS Safety Report 8249054-5 (Version None)
Quarter: 2012Q1

REPORT INFORMATION
  Report Type: 
  Country: None (occurrence: None)
  Receive Date: 20120327
  Receipt Date: 20120312
  Transmission Date: 20120608
  Serious: Yes (Other)
  Sender: FDA-Public Use
  Company Number: DSJ-2012-04732

PATIENT
  Age: 76 Year
  Sex: Female
  Weight: 66 kg

DRUGS (4)
  1. ALFACALCIDOL(ALFACALCIDOL)(ALFACALCIDOL) [Suspect]
     Indication: PRODUCT USED FOR UNKNOWN INDICATION
     Dosage: 1 MCG,
  2. FUROSEMIDE(FUROSEMIDE) (TABLET) (FUROSEMIDE) [Concomitant]
  3. SPIRONOLACTONE(SPIRONOLACTONE) (TABLET) (SPIRONOLACTONE) [Concomitant]
  4. OLMESARTAN MEDOXOMIL [Suspect]
     Indication: HYPERTENSION
     Dosage: 20 MG,PER ORAL
     Route: 048

REACTIONS (14)
  - AZOTAEMIA [None]
  - URINARY TRACT INFECTION [None]
  - HAEMODIALYSIS [None]
  - RED BLOOD CELLS URINE POSITIVE [None]
  - HYPOCALCAEMIA [None]
  - POST PROCEDURAL COMPLICATION [None]
  - RENAL FAILURE ACUTE [None]
  - DYSURIA [None]
  - CONVULSION [None]
  - LOSS OF CONSCIOUSNESS [None]
  - PYREXIA [None]
  - HYPERCALCAEMIA [None]
  - HYPERKALAEMIA [None]
  - CEREBRAL CALCIFICATION [None]
